FAERS Safety Report 16112015 (Version 3)
Quarter: 2020Q1

REPORT INFORMATION
  Report Type: Spontaneous
  Country: JP (occurrence: JP)
  Receive Date: 20190325
  Receipt Date: 20200220
  Transmission Date: 20200409
  Serious: Yes (Hospitalization, Other)
  Sender: FDA-Public Use
  Company Number: JP-BAYER-2019-053473

PATIENT
  Age: 45 Year
  Sex: Female
  Weight: 72 kg

DRUGS (3)
  1. GADOVIST [Suspect]
     Active Substance: GADOBUTROL
     Indication: MAGNETIC RESONANCE IMAGING
  2. GADOVIST [Suspect]
     Active Substance: GADOBUTROL
     Indication: CERVIX NEOPLASM
     Dosage: 7.5 ML, ONCE LEFT UPPER FOREARM
     Route: 042
     Dates: start: 20190314, end: 20190314
  3. GADOVIST [Suspect]
     Active Substance: GADOBUTROL
     Indication: OVARIAN NEOPLASM

REACTIONS (12)
  - Throat tightness [Recovering/Resolving]
  - Chest discomfort [Recovering/Resolving]
  - Increased ventricular afterload [None]
  - Nasal discomfort [Recovering/Resolving]
  - Blood pressure decreased [Recovering/Resolving]
  - Cough [Recovering/Resolving]
  - Anaphylactic shock [Recovering/Resolving]
  - Non-cardiogenic pulmonary oedema [Recovered/Resolved]
  - Arteriospasm coronary [None]
  - Dyspnoea [Recovering/Resolving]
  - Feeling hot [Recovering/Resolving]
  - Oropharyngeal discomfort [Recovering/Resolving]

NARRATIVE: CASE EVENT DATE: 20190314
